FAERS Safety Report 18677975 (Version 11)
Quarter: 2025Q2

REPORT INFORMATION
  Report Type: Report from Study
  Country: US (occurrence: US)
  Receive Date: 20201229
  Receipt Date: 20250507
  Transmission Date: 20250717
  Serious: Yes (Hospitalization, Other)
  Sender: TAKEDA
  Company Number: US-TAKEDA-2020TUS061015

PATIENT
  Age: 71 Year
  Sex: Female
  Weight: 83 kg

DRUGS (33)
  1. HUMAN IMMUNOGLOBULIN G [Suspect]
     Active Substance: HUMAN IMMUNOGLOBULIN G
     Indication: Immunodeficiency common variable
     Dosage: 400 MILLIGRAM/KILOGRAM
     Dates: start: 20121128
  2. HUMAN IMMUNOGLOBULIN G [Suspect]
     Active Substance: HUMAN IMMUNOGLOBULIN G
     Indication: Rheumatoid arthritis
     Dosage: 40 GRAM, Q4WEEKS
     Dates: start: 20121204
  3. HUMAN IMMUNOGLOBULIN G [Suspect]
     Active Substance: HUMAN IMMUNOGLOBULIN G
     Dosage: 40 GRAM, Q4WEEKS
  4. HEPARIN [Concomitant]
     Active Substance: HEPARIN SODIUM
  5. DIPHENHYDRAMINE [Concomitant]
     Active Substance: DIPHENHYDRAMINE
  6. IBUPROFEN [Concomitant]
     Active Substance: IBUPROFEN
  7. ATENOLOL [Concomitant]
     Active Substance: ATENOLOL
  8. VITAMIN D3 [Concomitant]
     Active Substance: CHOLECALCIFEROL
  9. EPINEPHRINE [Concomitant]
     Active Substance: EPINEPHRINE
  10. SODIUM CHLORIDE [Concomitant]
     Active Substance: SODIUM CHLORIDE
  11. VITAMIN C [Concomitant]
     Active Substance: ASCORBIC ACID
  12. IPRATROPIUM BROMIDE [Concomitant]
     Active Substance: IPRATROPIUM BROMIDE
  13. OMEPRAZOLE [Concomitant]
     Active Substance: OMEPRAZOLE
  14. MAGNESIUM [Concomitant]
     Active Substance: MAGNESIUM
  15. LIDOCAINE [Concomitant]
     Active Substance: LIDOCAINE
  16. OXYBUTYNIN CHLORIDE [Concomitant]
     Active Substance: OXYBUTYNIN CHLORIDE
  17. CAL-CITRATE PLUS VITAMIN D [Concomitant]
  18. ACETAMINOPHEN [Concomitant]
     Active Substance: ACETAMINOPHEN
  19. KEPPRA [Concomitant]
     Active Substance: LEVETIRACETAM
  20. XELJANZ [Concomitant]
     Active Substance: TOFACITINIB CITRATE
  21. CHLORIDE ION [Concomitant]
     Active Substance: CHLORIDE ION
  22. METHENAMINE [Concomitant]
     Active Substance: METHENAMINE
  23. GABAPENTIN [Concomitant]
     Active Substance: GABAPENTIN
  24. SYNTHROID [Concomitant]
     Active Substance: LEVOTHYROXINE SODIUM
  25. ENBREL [Concomitant]
     Active Substance: ETANERCEPT
  26. CVS ASPIRIN [Concomitant]
     Active Substance: ASPIRIN
  27. OXYBUTYNIN [Concomitant]
     Active Substance: OXYBUTYNIN
  28. VITAMIN D [Concomitant]
     Active Substance: VITAMIN D NOS
  29. XIFAXAN [Concomitant]
     Active Substance: RIFAXIMIN
  30. FLUCONAZOLE [Concomitant]
     Active Substance: FLUCONAZOLE
  31. LEVOFLOXACIN [Concomitant]
     Active Substance: LEVOFLOXACIN
  32. IPRATROPIUM [Concomitant]
     Active Substance: IPRATROPIUM
  33. DIPHENHYDRAMINE HYDROCHLORIDE [Concomitant]
     Active Substance: DIPHENHYDRAMINE HYDROCHLORIDE

REACTIONS (11)
  - Back disorder [Unknown]
  - Shoulder fracture [Unknown]
  - Arthritis [Unknown]
  - COVID-19 [Unknown]
  - Fall [Unknown]
  - Device ineffective [Unknown]
  - Intervertebral disc protrusion [Unknown]
  - Urinary tract infection [Recovered/Resolved]
  - Eczema [Unknown]
  - Catheterisation cardiac [Unknown]
  - Influenza [Unknown]

NARRATIVE: CASE EVENT DATE: 20231130
